FAERS Safety Report 26069156 (Version 1)
Quarter: 2025Q4

REPORT INFORMATION
  Report Type: Spontaneous
  Country: US (occurrence: None)
  Receive Date: 20251119
  Receipt Date: 20251119
  Transmission Date: 20260118
  Serious: Yes (Hospitalization)
  Sender: FDA-CTU
  Company Number: None

PATIENT
  Age: 70 Year
  Sex: Female

DRUGS (1)
  1. MESNA [Suspect]
     Active Substance: MESNA
     Dosage: 2 HOURS AND 6 HOURS COMPLETION OF INFUSION ON DAYS 1 TO 4 EVERY 21 DAYS?

REACTIONS (1)
  - Hospitalisation [None]
